FAERS Safety Report 14094741 (Version 3)
Quarter: 2018Q1

REPORT INFORMATION
  Report Type: Report from Study
  Country: GB (occurrence: GB)
  Receive Date: 20171016
  Receipt Date: 20180116
  Transmission Date: 20180508
  Serious: Yes (Other)
  Sender: FDA-Public Use
  Company Number: GB-JNJFOC-20171014642

PATIENT
  Age: 61 Year
  Sex: Female

DRUGS (1)
  1. SIMPONI [Suspect]
     Active Substance: GOLIMUMAB
     Indication: PRODUCT USED FOR UNKNOWN INDICATION
     Route: 058

REACTIONS (8)
  - Weight decreased [Unknown]
  - Constipation [Unknown]
  - Condition aggravated [Unknown]
  - Prolapse [Unknown]
  - Pain [Unknown]
  - Anal incontinence [Unknown]
  - Infection [Unknown]
  - Anxiety [Unknown]

NARRATIVE: CASE EVENT DATE: 201710
